FAERS Safety Report 11596758 (Version 1)
Quarter: 2015Q4

REPORT INFORMATION
  Report Type: Spontaneous
  Country: US (occurrence: None)
  Receive Date: 20151005
  Receipt Date: 20151005
  Transmission Date: 20160304
  Serious: Yes (Hospitalization, Disabling)
  Sender: FDA-Public Use
  Company Number: None

PATIENT
  Age: 49 Year
  Sex: Male
  Weight: 95.26 kg

DRUGS (8)
  1. TEGRETOL [Concomitant]
     Active Substance: CARBAMAZEPINE
  2. KEPPRA [Concomitant]
     Active Substance: LEVETIRACETAM
  3. MULTI-VITAMIN [Concomitant]
     Active Substance: .ALPHA.-TOCOPHEROL ACETATE, DL-\ASCORBIC ACID\CYANOCOBALAMIN\FLUORIDE ION\FOLIC ACID\NIACIN\PYRIDOXINE\RIBOFLAVIN\THIAMINE\VITAMIN A\VITAMIN D
  4. PROBIOTICS [Concomitant]
     Active Substance: PROBIOTICS NOS
  5. COCONUT OIL [Concomitant]
     Active Substance: COCONUT OIL
  6. VITAMIN D3 [Concomitant]
     Active Substance: CHOLECALCIFEROL
  7. WEST WHEAT GRASS [Concomitant]
     Active Substance: PASCOPYRUM SMITHII POLLEN
  8. LEVETIRACETAM GENERIC FOR KEPPRA [Suspect]
     Active Substance: LEVETIRACETAM
     Indication: EPILEPSY
     Route: 048
     Dates: end: 20150127

REACTIONS (13)
  - Generalised tonic-clonic seizure [None]
  - Fall [None]
  - Osteomyelitis [None]
  - Aura [None]
  - Neck injury [None]
  - Impaired work ability [None]
  - Product substitution issue [None]
  - Postoperative wound infection [None]
  - Paralysis [None]
  - Jaw fracture [None]
  - Loss of employment [None]
  - Loss of consciousness [None]
  - Petit mal epilepsy [None]

NARRATIVE: CASE EVENT DATE: 20120122
